FAERS Safety Report 16821430 (Version 2)
Quarter: 2019Q3

REPORT INFORMATION
  Report Type: Report from Study
  Country: US (occurrence: US)
  Receive Date: 20190918
  Receipt Date: 20190923
  Transmission Date: 20191005
  Serious: Yes (Disabling, Other)
  Sender: FDA-Public Use
  Company Number: US-SA-2018SA298811

PATIENT
  Age: 43 Year
  Sex: Female

DRUGS (2)
  1. ACYCLOVIR [ACICLOVIR] [Concomitant]
     Active Substance: ACYCLOVIR
     Dosage: UNK UNK, BID
     Route: 065
     Dates: start: 20181008
  2. ALEMTUZUMAB [Suspect]
     Active Substance: ALEMTUZUMAB
     Indication: MULTIPLE SCLEROSIS
     Dosage: 12 MG, QD FOR 5 DAYS
     Route: 041
     Dates: start: 20181008, end: 20181012

REACTIONS (37)
  - Muscle spasms [Not Recovered/Not Resolved]
  - Cough [Unknown]
  - Dysstasia [Not Recovered/Not Resolved]
  - Memory impairment [Not Recovered/Not Resolved]
  - Menorrhagia [Recovered/Resolved]
  - Oral mucosal discolouration [Recovered/Resolved]
  - Rash [Not Recovered/Not Resolved]
  - Headache [Unknown]
  - Erythema [Recovering/Resolving]
  - Malaise [Unknown]
  - Impaired driving ability [Unknown]
  - Unevaluable event [Unknown]
  - Blood pressure decreased [Recovered/Resolved]
  - Nausea [Not Recovered/Not Resolved]
  - Dyspnoea [Unknown]
  - Movement disorder [Unknown]
  - Asthenia [Unknown]
  - Increased tendency to bruise [Not Recovered/Not Resolved]
  - Pruritus [Recovered/Resolved]
  - Fungal infection [Recovering/Resolving]
  - Face injury [Unknown]
  - Frustration tolerance decreased [Not Recovered/Not Resolved]
  - Loss of personal independence in daily activities [Unknown]
  - Gait inability [Not Recovered/Not Resolved]
  - Pharyngeal swelling [Recovered/Resolved]
  - Joint injury [Unknown]
  - Suicidal ideation [Unknown]
  - Dysgraphia [Not Recovered/Not Resolved]
  - Muscular weakness [Not Recovered/Not Resolved]
  - Vomiting [Not Recovered/Not Resolved]
  - Fatigue [Unknown]
  - Rash pruritic [Recovering/Resolving]
  - Stress [Unknown]
  - Fall [Unknown]
  - Condition aggravated [Recovered/Resolved]
  - Abdominal pain upper [Recovered/Resolved]
  - Diarrhoea [Recovered/Resolved]

NARRATIVE: CASE EVENT DATE: 201810
